FAERS Safety Report 24392310 (Version 1)
Quarter: 2024Q4

REPORT INFORMATION
  Report Type: Report from Study
  Country: US (occurrence: US)
  Receive Date: 20241003
  Receipt Date: 20241003
  Transmission Date: 20250115
  Serious: Yes (Death)
  Sender: OTSUKA
  Company Number: US-OTSUKA-2024_027165

PATIENT
  Age: 72 Year
  Sex: Female

DRUGS (2)
  1. DEXTROMETHORPHAN HYDROBROMIDE\QUINIDINE SULFATE [Suspect]
     Active Substance: DEXTROMETHORPHAN HYDROBROMIDE\QUINIDINE SULFATE
     Indication: Product used for unknown indication
     Dosage: UNK (20-10 MG), BID (TWICE PER DAY)
     Route: 065
  2. DEXTROMETHORPHAN HYDROBROMIDE\QUINIDINE SULFATE [Suspect]
     Active Substance: DEXTROMETHORPHAN HYDROBROMIDE\QUINIDINE SULFATE
     Dosage: UNK (20-10 MG), QD (ONCE A DAY)
     Route: 065
     Dates: end: 202404

REACTIONS (2)
  - Death [Fatal]
  - Feeling jittery [Unknown]

NARRATIVE: CASE EVENT DATE: 20240101
